FAERS Safety Report 14624678 (Version 2)
Quarter: 2018Q2

REPORT INFORMATION
  Report Type: Spontaneous
  Country: US (occurrence: US)
  Receive Date: 20180312
  Receipt Date: 20180605
  Transmission Date: 20180711
  Serious: No
  Sender: FDA-Public Use
  Company Number: US-PFIZER INC-2018069356

PATIENT
  Age: 74 Year
  Sex: Female
  Weight: 79 kg

DRUGS (4)
  1. VALSARTAN. [Concomitant]
     Active Substance: VALSARTAN
     Dosage: UNK
  2. IBRANCE [Suspect]
     Active Substance: PALBOCICLIB
     Indication: BREAST CANCER STAGE IV
     Dosage: 125 MG, DAILY (DAILY TO 21)
     Dates: start: 201710
  3. METFORMIN ER [Concomitant]
     Active Substance: METFORMIN HYDROCHLORIDE
     Indication: TYPE 2 DIABETES MELLITUS
     Dosage: 1000 MG, DAILY [2 TABLETS TAKEN BY MOUTH DAILY]
     Route: 048
     Dates: start: 2017, end: 20180530
  4. LETROZOLE. [Concomitant]
     Active Substance: LETROZOLE
     Dosage: 2.5 MG, UNK
     Dates: start: 20171004

REACTIONS (2)
  - Alopecia [Recovered/Resolved]
  - Nail disorder [Recovered/Resolved]

NARRATIVE: CASE EVENT DATE: 20180121
